FAERS Safety Report 8611285-X (Version None)
Quarter: 2012Q3

REPORT INFORMATION
  Report Type: 
  Country: None (occurrence: None)
  Receive Date: 20120822
  Receipt Date: 20120809
  Transmission Date: 20120928
  Serious: Yes (Other)
  Sender: FDA-Public Use
  Company Number: US-ELI_LILLY_AND_COMPANY-US201208003720

PATIENT
  Sex: Female

DRUGS (2)
  1. HUMALOG [Suspect]
     Indication: TYPE 1 DIABETES MELLITUS
     Dosage: 15 U, TID
     Dates: start: 20110701
  2. LANTUS [Concomitant]

REACTIONS (1)
  - VISUAL IMPAIRMENT [None]
